FAERS Safety Report 14216171 (Version 1)
Quarter: 2017Q4

REPORT INFORMATION
  Report Type: Report from Study
  Country: KW (occurrence: KW)
  Receive Date: 20171122
  Receipt Date: 20171122
  Transmission Date: 20180321
  Serious: Yes (Hospitalization, Other)
  Sender: FDA-Public Use
  Company Number: KW-INCYTE CORPORATION-2017IN008544

PATIENT

DRUGS (3)
  1. JAKAVI [Suspect]
     Active Substance: RUXOLITINIB
     Indication: MYELOFIBROSIS
     Dosage: 5 MG, UNK
     Route: 048
     Dates: start: 20170308, end: 20170905
  2. HYDREA [Concomitant]
     Active Substance: HYDROXYUREA
     Indication: LABORATORY TEST ABNORMAL
     Dosage: 500 OT, UNK
     Route: 065
     Dates: start: 20170813, end: 20170822
  3. HYDREA [Concomitant]
     Active Substance: HYDROXYUREA
     Indication: WHITE BLOOD CELL COUNT INCREASED
     Dosage: 500 MG, UNK
     Route: 065
     Dates: start: 20170817, end: 20170822

REACTIONS (6)
  - Lung consolidation [Recovered/Resolved]
  - Cough [Recovered/Resolved]
  - Acute myeloid leukaemia [Unknown]
  - Pyrexia [Recovered/Resolved]
  - Lower respiratory tract infection [Recovered/Resolved]
  - Dyspnoea [Recovered/Resolved]

NARRATIVE: CASE EVENT DATE: 20170802
